FAERS Safety Report 13794091 (Version 1)
Quarter: 2017Q3

REPORT INFORMATION
  Report Type: Spontaneous
  Country: HR (occurrence: HR)
  Receive Date: 20170726
  Receipt Date: 20170726
  Transmission Date: 20171127
  Serious: Yes (Other)
  Sender: FDA-Public Use
  Company Number: HR-BAXTER-2017BAX028512

PATIENT
  Sex: Female

DRUGS (4)
  1. ENDOXAN PRASAK ZA OTOPINU ZA INJEKCIJU 1 G [Suspect]
     Active Substance: CYCLOPHOSPHAMIDE
     Dosage: DOSE-REINTRODUCED
     Route: 065
  2. ENDOXAN PRASAK ZA OTOPINU ZA INJEKCIJU 1 G [Suspect]
     Active Substance: CYCLOPHOSPHAMIDE
     Indication: BREAST CANCER
     Route: 065
     Dates: start: 201103, end: 201604
  3. ANASTROZOLE. [Suspect]
     Active Substance: ANASTROZOLE
     Indication: BREAST CANCER
     Dosage: ENDOCRINE THERAPY
     Route: 065
     Dates: start: 201103, end: 201604
  4. ANASTROZOLE. [Suspect]
     Active Substance: ANASTROZOLE
     Dosage: DOSE RE-INTRODUCED
     Route: 065

REACTIONS (3)
  - Breast cancer metastatic [Not Recovered/Not Resolved]
  - Metastases to bone [Unknown]
  - Metastases to peritoneum [Unknown]

NARRATIVE: CASE EVENT DATE: 201604
